FAERS Safety Report 12084888 (Version 3)
Quarter: 2016Q2

REPORT INFORMATION
  Report Type: Spontaneous
  Country: US (occurrence: US)
  Receive Date: 20160217
  Receipt Date: 20160421
  Transmission Date: 20160815
  Serious: Yes (Other)
  Sender: FDA-Public Use
  Company Number: US-BAYER-2016-029047

PATIENT
  Sex: Female

DRUGS (2)
  1. AFRIN NO DRIP SINUS PUMP MIST [Suspect]
     Active Substance: OXYMETAZOLINE HYDROCHLORIDE
     Indication: NASAL CONGESTION
     Dosage: UNK
     Dates: end: 20160212
  2. AFRIN ORIGINAL [Suspect]
     Active Substance: OXYMETAZOLINE HYDROCHLORIDE
     Indication: NASAL CONGESTION
     Dosage: UNK
     Dates: end: 20160212

REACTIONS (7)
  - Product use issue [None]
  - Arthritis [None]
  - Limb injury [None]
  - Drug dependence [None]
  - Incorrect drug administration duration [None]
  - Product closure removal difficult [None]
  - Product package associated injury [None]
